FAERS Safety Report 18724119 (Version 2)
Quarter: 2021Q1

REPORT INFORMATION
  Report Type: Spontaneous
  Country: US (occurrence: US)
  Receive Date: 20210111
  Receipt Date: 20210224
  Transmission Date: 20210419
  Serious: No
  Sender: FDA-Public Use
  Company Number: US-ASTRAZENECA-2021A000255

PATIENT
  Age: 78 Year
  Sex: Male

DRUGS (1)
  1. BYDUREON BCISE [Suspect]
     Active Substance: EXENATIDE
     Route: 065

REACTIONS (5)
  - Incorrect dose administered by device [Unknown]
  - Device leakage [Unknown]
  - Intentional device misuse [Unknown]
  - Injection site discolouration [Recovered/Resolved with Sequelae]
  - Device mechanical issue [Unknown]

NARRATIVE: CASE EVENT DATE: 20201229
